FAERS Safety Report 4915861-7 (Version None)
Quarter: 2006Q1

REPORT INFORMATION
  Report Type: 
  Country: None (occurrence: None)
  Receive Date: 20060214
  Receipt Date: 20060202
  Transmission Date: 20060701
  Serious: Yes (Other)
  Sender: FDA-Public Use
  Company Number: 2006017636

PATIENT
  Age: 63 Year
  Sex: Female
  Weight: 129.2752 kg

DRUGS (2)
  1. NORVASC [Suspect]
     Indication: HYPERTENSION
     Dosage: 10 MG (10 MG,QD INTERVAL: EVERY DAY), ORAL
     Route: 048
     Dates: start: 20050101
  2. BENICAR [Concomitant]

REACTIONS (1)
  - PITUITARY TUMOUR [None]
